FAERS Safety Report 9218245 (Version 2)
Quarter: 2013Q4

REPORT INFORMATION
  Report Type: Spontaneous
  Country: JP (occurrence: JP)
  Receive Date: 20130408
  Receipt Date: 20131023
  Transmission Date: 20140711
  Serious: Yes (Death, Other)
  Sender: FDA-Public Use
  Company Number: JP-AMGEN-JPNSP2012084431

PATIENT
  Age: 72 Year
  Sex: Male
  Weight: 58 kg

DRUGS (21)
  1. VECTIBIX [Suspect]
     Indication: COLON CANCER
     Dosage: 354 MG, Q2WK
     Route: 041
     Dates: start: 20100917, end: 20101008
  2. IRINOTECAN HYDROCHLORIDE [Suspect]
     Indication: COLON CANCER
     Dosage: 225 MG, Q2WK
     Route: 041
     Dates: start: 20100514, end: 20100820
  3. IRINOTECAN HYDROCHLORIDE [Suspect]
     Dosage: 180 MG, Q2WK
     Route: 041
     Dates: start: 20100917, end: 20101008
  4. 5-FU                               /00098801/ [Concomitant]
     Indication: COLON CANCER
     Dosage: UNK UNK, Q2WK
     Route: 042
     Dates: start: 20091031
  5. 5-FU                               /00098801/ [Concomitant]
     Dosage: UNK UNK, Q2WK
     Route: 042
     Dates: start: 20091225
  6. 5-FU                               /00098801/ [Concomitant]
     Dosage: 515 MG, Q2WK
     Route: 040
     Dates: start: 20100514, end: 20100820
  7. 5-FU                               /00098801/ [Concomitant]
     Dosage: 3000 MG, Q2WK
     Route: 041
     Dates: start: 20100514, end: 20100820
  8. 5-FU                               /00098801/ [Concomitant]
     Dosage: 600 MG, Q2WK
     Route: 040
     Dates: start: 20100917, end: 20101008
  9. 5-FU                               /00098801/ [Concomitant]
     Dosage: 3600 MG, Q2WK
     Dates: start: 20100917, end: 20101008
  10. CALCIUM LEVOFOLINATE [Concomitant]
     Indication: COLON CANCER
     Dosage: UNK UNK, Q2WK
     Route: 041
     Dates: start: 20091031
  11. CALCIUM LEVOFOLINATE [Concomitant]
     Dosage: UNK UNK, Q2WK
     Route: 041
     Dates: start: 20091225
  12. CALCIUM LEVOFOLINATE [Concomitant]
     Dosage: UNK
     Route: 041
     Dates: start: 20100514, end: 20100820
  13. CALCIUM LEVOFOLINATE [Concomitant]
     Dosage: UNK
     Route: 041
     Dates: start: 20100917, end: 20101008
  14. KENALOG                            /00031902/ [Concomitant]
     Dosage: UNK
     Route: 062
  15. RESTAMIN CORTISONE [Concomitant]
     Dosage: UNK
     Route: 062
  16. BAYASPIRIN [Concomitant]
     Dosage: UNK
     Route: 048
  17. PYDOXAL [Concomitant]
     Dosage: UNK
     Route: 048
  18. MAGLAX [Concomitant]
     Dosage: UNK
     Route: 048
  19. DEXART [Concomitant]
     Dosage: UNK
     Route: 042
  20. GRANISETRON [Concomitant]
     Dosage: UNK
     Route: 042
  21. GAMOFA [Concomitant]
     Dosage: UNK
     Route: 042

REACTIONS (3)
  - Colon cancer [Fatal]
  - Condition aggravated [Fatal]
  - Neutropenia [Recovered/Resolved]
